FAERS Safety Report 6991296-0 (Version None)
Quarter: 2010Q3

REPORT INFORMATION
  Report Type: 
  Country: None (occurrence: None)
  Receive Date: 20100916
  Receipt Date: 20080908
  Transmission Date: 20110219
  Serious: No
  Sender: FDA-Public Use
  Company Number: US-WYE-H05939008

PATIENT
  Sex: Female

DRUGS (3)
  1. PREMARIN [Suspect]
     Indication: HORMONE REPLACEMENT THERAPY
     Dosage: 0.625MG; FREQUENCY UNKNOWN
     Route: 048
  2. PREMARIN [Suspect]
     Dosage: 0.3MG; FREQUENCY UNKNOWN
     Route: 048
  3. ACTONEL [Concomitant]

REACTIONS (1)
  - ALLERGY TO CHEMICALS [None]
